FAERS Safety Report 23185977 (Version 1)
Quarter: 2023Q4

REPORT INFORMATION
  Report Type: Spontaneous
  Country: CA (occurrence: CA)
  Receive Date: 20231115
  Receipt Date: 20231115
  Transmission Date: 20240110
  Serious: Yes (Other)
  Sender: FDA-Public Use
  Company Number: CA-MYLANLABS-2023M1121510

PATIENT

DRUGS (1)
  1. VERAPAMIL [Suspect]
     Active Substance: VERAPAMIL HYDROCHLORIDE
     Indication: Product used for unknown indication
     Dosage: UNK (ONCE)
     Route: 065

REACTIONS (5)
  - Anxiety [Unknown]
  - Migraine [Unknown]
  - Restlessness [Unknown]
  - Tremor [Unknown]
  - Suspected counterfeit product [Unknown]
